FAERS Safety Report 13951564 (Version 4)
Quarter: 2017Q4

REPORT INFORMATION
  Report Type: Spontaneous
  Country: US (occurrence: US)
  Receive Date: 20170908
  Receipt Date: 20171222
  Transmission Date: 20180320
  Serious: Yes (Hospitalization, Other)
  Sender: FDA-Public Use
  Company Number: US-009507513-1708USA012085

PATIENT
  Age: 71 Year
  Sex: Female

DRUGS (16)
  1. DILAUDID [Concomitant]
     Active Substance: HYDROMORPHONE HYDROCHLORIDE
  2. MORPHINE [Concomitant]
     Active Substance: MORPHINE
  3. SINGULAIR [Concomitant]
     Active Substance: MONTELUKAST SODIUM
     Dosage: UNK
  4. HYDROMORPHONE [Concomitant]
     Active Substance: HYDROMORPHONE
  5. CETIRIZINE HYDROCHLORIDE. [Concomitant]
     Active Substance: CETIRIZINE HYDROCHLORIDE
  6. CLINDAMYCIN. [Concomitant]
     Active Substance: CLINDAMYCIN
  7. PAROXETINE. [Concomitant]
     Active Substance: PAROXETINE
  8. PHENERGAN [Concomitant]
     Active Substance: PROMETHAZINE HYDROCHLORIDE
  9. KEYTRUDA [Suspect]
     Active Substance: PEMBROLIZUMAB
     Dosage: 200MG, EVERY 3 WEEKS
     Route: 042
     Dates: start: 20170122, end: 20170622
  10. KEYTRUDA [Suspect]
     Active Substance: PEMBROLIZUMAB
     Indication: COLON CANCER
     Dosage: 200MG, EVERY 3 WEEKS
     Route: 042
     Dates: start: 20170822, end: 20170822
  11. KEYTRUDA [Suspect]
     Active Substance: PEMBROLIZUMAB
     Dosage: 200MG, EVERY 3 WEEKS
     Route: 042
     Dates: start: 2017, end: 2017
  12. KEYTRUDA [Suspect]
     Active Substance: PEMBROLIZUMAB
     Dosage: 200MG, EVERY 3 WEEKS
     Route: 042
     Dates: start: 2017, end: 2017
  13. LEVOTHYROXINE SODIUM. [Concomitant]
     Active Substance: LEVOTHYROXINE SODIUM
  14. ATIVAN [Concomitant]
     Active Substance: LORAZEPAM
     Dosage: UNK
     Route: 042
     Dates: start: 20170822
  15. VITAMINS (UNSPECIFIED) [Concomitant]
     Active Substance: VITAMINS
     Dosage: UNK
  16. LINZESS [Concomitant]
     Active Substance: LINACLOTIDE

REACTIONS (16)
  - Dyskinesia [Unknown]
  - Gait disturbance [Unknown]
  - Tremor [Unknown]
  - Adverse event [Unknown]
  - Somnolence [Unknown]
  - Feeling abnormal [Unknown]
  - Dystonia [Unknown]
  - Heart rate abnormal [Unknown]
  - Hyperhidrosis [Unknown]
  - Seizure [Unknown]
  - Blood pressure increased [Unknown]
  - Myalgia [Unknown]
  - Seizure like phenomena [Unknown]
  - Cyanosis [Unknown]
  - Chills [Unknown]
  - Oxygen saturation decreased [Unknown]

NARRATIVE: CASE EVENT DATE: 2017
